FAERS Safety Report 6330333-3 (Version None)
Quarter: 2009Q3

REPORT INFORMATION
  Report Type: 
  Country: None (occurrence: None)
  Receive Date: 20090826
  Receipt Date: 20090826
  Transmission Date: 20100115
  Serious: No
  Sender: FDA-Public Use
  Company Number: None

PATIENT
  Age: 10 Year
  Sex: Male
  Weight: 32.659 kg

DRUGS (4)
  1. DOXYCYCLINE HYCLATE [Suspect]
     Indication: ABDOMINAL PAIN UPPER
     Dosage: 100 MG 2 X PER DAY PO
     Route: 048
     Dates: start: 20090811, end: 20090822
  2. DOXYCYCLINE HYCLATE [Suspect]
     Indication: ARTHROPOD BITE
     Dosage: 100 MG 2 X PER DAY PO
     Route: 048
     Dates: start: 20090811, end: 20090822
  3. DOXYCYCLINE HYCLATE [Suspect]
     Indication: FATIGUE
     Dosage: 100 MG 2 X PER DAY PO
     Route: 048
     Dates: start: 20090811, end: 20090822
  4. DOXYCYCLINE HYCLATE [Suspect]
     Indication: PYREXIA
     Dosage: 100 MG 2 X PER DAY PO
     Route: 048
     Dates: start: 20090811, end: 20090822

REACTIONS (1)
  - ORAL HERPES [None]
